FAERS Safety Report 8694660 (Version 2)
Quarter: 2013Q4

REPORT INFORMATION
  Report Type: Spontaneous
  Country: US (occurrence: US)
  Receive Date: 20120731
  Receipt Date: 20131105
  Transmission Date: 20140711
  Serious: Yes (Hospitalization)
  Sender: FDA-Public Use
  Company Number: US-009507513-1207USA010917

PATIENT
  Sex: Female

DRUGS (2)
  1. FOSAMAX [Suspect]
     Indication: OSTEOPOROSIS
     Dosage: UNK
     Route: 048
  2. BONIVA [Suspect]

REACTIONS (4)
  - Femur fracture [Unknown]
  - Ulcer [Unknown]
  - Gait disturbance [Unknown]
  - Musculoskeletal pain [Unknown]
